FAERS Safety Report 13990256 (Version 1)
Quarter: 2017Q3

REPORT INFORMATION
  Report Type: Spontaneous
  Country: US (occurrence: US)
  Receive Date: 20170920
  Receipt Date: 20170920
  Transmission Date: 20171128
  Serious: Yes (Death, Other)
  Sender: FDA-Public Use
  Company Number: US-ORION CORPORATION ORION PHARMA-TREX2017-2867

PATIENT
  Age: 7 Year
  Sex: Female

DRUGS (5)
  1. METHOTREXATE. [Suspect]
     Active Substance: METHOTREXATE
     Indication: PROPHYLAXIS AGAINST GRAFT VERSUS HOST DISEASE
     Route: 065
  2. FLUDARABINE [Suspect]
     Active Substance: FLUDARABINE PHOSPHATE
     Route: 065
  3. CICLOSPORIN [Suspect]
     Active Substance: CYCLOSPORINE
     Indication: PROPHYLAXIS AGAINST GRAFT VERSUS HOST DISEASE
     Route: 065
  4. CYCLOPHOSPHAMIDE. [Suspect]
     Active Substance: CYCLOPHOSPHAMIDE
     Route: 065
  5. BUSULFAN. [Suspect]
     Active Substance: BUSULFAN
     Route: 065

REACTIONS (12)
  - Respiratory syncytial virus infection [Fatal]
  - Gastrointestinal haemorrhage [Unknown]
  - Chronic kidney disease [Fatal]
  - Posterior reversible encephalopathy syndrome [Unknown]
  - Thrombotic microangiopathy [Fatal]
  - Pericardial effusion [Unknown]
  - Hypertension [Unknown]
  - Respiratory failure [Fatal]
  - Acute graft versus host disease [Unknown]
  - Seizure [Unknown]
  - Haemorrhage intracranial [Unknown]
  - Acute kidney injury [Unknown]
